FAERS Safety Report 20303901 (Version 2)
Quarter: 2022Q4

REPORT INFORMATION
  Report Type: Spontaneous
  Country: US (occurrence: US)
  Receive Date: 20220106
  Receipt Date: 20221223
  Transmission Date: 20230112
  Serious: Yes (Other)
  Sender: FDA-Public Use
  Company Number: US-AMGEN-USASP2021208486

PATIENT
  Age: 56 Year
  Sex: Female

DRUGS (3)
  1. EVENITY [Suspect]
     Active Substance: ROMOSOZUMAB-AQQG
     Indication: Osteoporosis
     Dosage: UNK
     Route: 065
     Dates: start: 20211230
  2. HUMIRA [Concomitant]
     Active Substance: ADALIMUMAB
     Indication: Rheumatoid arthritis
     Dosage: EVERY TWO WEEKS, AND THEN AFTER THAT MONTH, GO BACK TO EVERY TWO WEEKS
     Dates: start: 2002
  3. COVID-19 vaccine [Concomitant]
     Dosage: UNK

REACTIONS (14)
  - Rheumatoid arthritis [Not Recovered/Not Resolved]
  - Limb operation [Unknown]
  - Thoracic vertebral fracture [Unknown]
  - Lumbar vertebral fracture [Unknown]
  - Pyrexia [Unknown]
  - Chest discomfort [Unknown]
  - Productive cough [Unknown]
  - Gait disturbance [Unknown]
  - Illness [Unknown]
  - Drug intolerance [Unknown]
  - Peripheral swelling [Unknown]
  - Pain [Unknown]
  - Joint effusion [Unknown]
  - Arthralgia [Unknown]

NARRATIVE: CASE EVENT DATE: 20211201
